FAERS Safety Report 7105903-5 (Version None)
Quarter: 2010Q4

REPORT INFORMATION
  Report Type: 
  Country: None (occurrence: None)
  Receive Date: 20101116
  Receipt Date: 20101109
  Transmission Date: 20110411
  Serious: Yes (Hospitalization)
  Sender: FDA-Public Use
  Company Number: B0667057A

PATIENT
  Sex: Male

DRUGS (5)
  1. PAZOPANIB [Suspect]
     Indication: NEOPLASM
     Dosage: 1000MG PER DAY
     Route: 065
     Dates: start: 20100614, end: 20100730
  2. IFOSFAMIDE [Suspect]
     Indication: NEOPLASM
     Dosage: 3GM2 PER DAY
     Route: 051
     Dates: start: 20100621, end: 20100715
  3. DICLOFENAC SODIUM [Concomitant]
     Indication: PAIN
     Dosage: 50MG THREE TIMES PER DAY
     Route: 048
     Dates: start: 20100301, end: 20100721
  4. RANITIDINE [Concomitant]
     Indication: ILL-DEFINED DISORDER
     Dosage: 300MG PER DAY
     Route: 048
     Dates: start: 20100625
  5. KEPPRA [Concomitant]
     Indication: PARTIAL SEIZURES
     Dosage: 750MG TWICE PER DAY
     Route: 048
     Dates: start: 20100610

REACTIONS (5)
  - CHILLS [None]
  - FEBRILE NEUTROPENIA [None]
  - GENERAL PHYSICAL HEALTH DETERIORATION [None]
  - INCORRECT DRUG ADMINISTRATION DURATION [None]
  - LEUKOPENIA [None]
